FAERS Safety Report 15096274 (Version 4)
Quarter: 2018Q3

REPORT INFORMATION
  Report Type: Spontaneous
  Country: US (occurrence: US)
  Receive Date: 20180702
  Receipt Date: 20180903
  Transmission Date: 20181010
  Serious: No
  Sender: FDA-Public Use
  Company Number: US-PFIZER INC-2018261968

PATIENT
  Age: 49 Year
  Sex: Male
  Weight: 85.26 kg

DRUGS (4)
  1. GENOTROPIN MQ [Suspect]
     Active Substance: SOMATROPIN
     Dosage: 1.0 MG, ALTERNATE DAY (TO ACHIEVE OF 0.9 MG DAILY DOSE)
     Dates: start: 201806, end: 20180803
  2. GENOTROPIN MQ [Suspect]
     Active Substance: SOMATROPIN
     Dosage: 0.8 MG, ALTERNATE DAY (TO ACHIEVE OF 0.9 MG DAILY DOSE)
     Dates: start: 201806, end: 20180803
  3. GENOTROPIN MQ [Suspect]
     Active Substance: SOMATROPIN
     Indication: GROWTH HORMONE DEFICIENCY
     Dosage: 0.8 MG, ONCE DAILY
     Dates: start: 20180626, end: 201806
  4. GENOTROPIN MQ [Suspect]
     Active Substance: SOMATROPIN
     Indication: HYPOTHALAMO-PITUITARY DISORDER
     Dosage: 0.9 MG, ONCE DAILY

REACTIONS (8)
  - Peripheral swelling [Unknown]
  - Underdose [Unknown]
  - Drug hypersensitivity [Unknown]
  - Pain [Unknown]
  - Paraesthesia [Unknown]
  - Injection site reaction [Unknown]
  - Abdominal pain upper [Unknown]
  - Drug prescribing error [Unknown]

NARRATIVE: CASE EVENT DATE: 2018
